FAERS Safety Report 9955655 (Version 2)
Quarter: 2014Q2

REPORT INFORMATION
  Report Type: Report from Study
  Country: GB (occurrence: GB)
  Receive Date: 20140304
  Receipt Date: 20140618
  Transmission Date: 20141212
  Serious: Yes (Hospitalization)
  Sender: FDA-Public Use
  Company Number: GB-BRISTOL-MYERS SQUIBB COMPANY-20293973

PATIENT
  Age: 78 Year
  Sex: Female

DRUGS (3)
  1. PLACEBO [Suspect]
     Indication: TYPE 2 DIABETES MELLITUS
     Dates: start: 20140206
  2. ALENDRONIC ACID [Suspect]
     Indication: OSTEOPOROSIS
  3. METFORMIN HCL [Suspect]
     Indication: TYPE 2 DIABETES MELLITUS
     Route: 048
     Dates: start: 20140206

REACTIONS (1)
  - Femur fracture [Recovered/Resolved]
